FAERS Safety Report 21485249 (Version 1)
Quarter: 2022Q4

REPORT INFORMATION
  Report Type: Spontaneous
  Country: US (occurrence: None)
  Receive Date: 20221019
  Receipt Date: 20221019
  Transmission Date: 20230113
  Serious: Yes (Hospitalization)
  Sender: FDA-Public Use
  Company Number: None

PATIENT
  Age: 92 Year
  Sex: Female

DRUGS (1)
  1. IDHIFA [Suspect]
     Active Substance: ENASIDENIB MESYLATE
     Dosage: FREQUENCY : DAILY;?
     Route: 048
     Dates: start: 20220802

REACTIONS (3)
  - Renal failure [None]
  - Hallucination [None]
  - Product dose omission issue [None]

NARRATIVE: CASE EVENT DATE: 20220901
